FAERS Safety Report 13108422 (Version 1)
Quarter: 2017Q1

REPORT INFORMATION
  Report Type: Spontaneous
  Country: US (occurrence: US)
  Receive Date: 20170111
  Receipt Date: 20170111
  Transmission Date: 20170428
  Serious: Yes (Other)
  Sender: FDA-Public Use
  Company Number: None

PATIENT
  Age: 24 Year
  Sex: Female
  Weight: 83.54 kg

DRUGS (1)
  1. MIRENA [Suspect]
     Active Substance: LEVONORGESTREL

REACTIONS (9)
  - Haemorrhage [None]
  - Malaise [None]
  - Pyrexia [None]
  - Muscle spasms [None]
  - Nausea [None]
  - Dizziness [None]
  - Pain [None]
  - Syncope [None]
  - Complication of device insertion [None]

NARRATIVE: CASE EVENT DATE: 20170110
